FAERS Safety Report 15593761 (Version 2)
Quarter: 2018Q4

REPORT INFORMATION
  Report Type: Spontaneous
  Country: US (occurrence: US)
  Receive Date: 20181106
  Receipt Date: 20181226
  Transmission Date: 20190205
  Serious: No
  Sender: FDA-Public Use
  Company Number: US-PFIZER INC-2018449921

PATIENT
  Age: 75 Year
  Sex: Female

DRUGS (2)
  1. SUTENT [Suspect]
     Active Substance: SUNITINIB MALATE
     Dosage: 25 MG, UNK
  2. SUTENT [Suspect]
     Active Substance: SUNITINIB MALATE
     Dosage: 50 MG, UNK

REACTIONS (11)
  - Diarrhoea [Unknown]
  - Oral pain [Unknown]
  - Oropharyngeal pain [Unknown]
  - Abdominal pain [Unknown]
  - Anxiety [Unknown]
  - Malaise [Unknown]
  - Gingival bleeding [Recovering/Resolving]
  - Alopecia [Recovering/Resolving]
  - Depression [Unknown]
  - Fatigue [Unknown]
  - Glossodynia [Unknown]
